FAERS Safety Report 5143945-X (Version None)
Quarter: 2006Q4

REPORT INFORMATION
  Report Type: 
  Country: None (occurrence: None)
  Receive Date: 20061106
  Receipt Date: 20061025
  Transmission Date: 20070319
  Serious: Yes (Other)
  Sender: FDA-Public Use
  Company Number: PHEH2006US13387

PATIENT
  Age: 76 Year
  Sex: Female

DRUGS (1)
  1. ZOMETA [Suspect]
     Indication: METASTASES TO BONE
     Dosage: ONE TIME PER MONTH
     Dates: start: 20060601, end: 20060901

REACTIONS (2)
  - ABASIA [None]
  - MUSCULAR WEAKNESS [None]
